FAERS Safety Report 4543814-X (Version None)
Quarter: 2005Q1

REPORT INFORMATION
  Report Type: 
  Country: None (occurrence: None)
  Receive Date: 20050104
  Receipt Date: 20040804
  Transmission Date: 20050727
  Serious: Yes (Hospitalization)
  Sender: FDA-Public Use
  Company Number: GB-SOLVAY-00204002633

PATIENT
  Age: 83 Year
  Sex: Female

DRUGS (5)
  1. BENDROFLUAZIDE [Concomitant]
     Indication: ILL-DEFINED DISORDER
     Dosage: DAILY DOSE: UNK.
     Route: 048
  2. COVERSYL [Suspect]
     Indication: HYPERTENSION
     Dosage: DAILY DOSE: 2 MG.
     Route: 048
     Dates: start: 20040704, end: 20040706
  3. ATENOLOL [Suspect]
     Indication: ILL-DEFINED DISORDER
     Dosage: DAILY DOSE: UNK.
     Route: 048
     Dates: end: 20040101
  4. ATENOLOL [Suspect]
     Dosage: DAILY DOSE: 100 MG.
     Route: 048
     Dates: start: 20040101, end: 20040701
  5. ATENOLOL [Suspect]
     Dosage: DAILY DOSE: 25 MG.
     Route: 048
     Dates: start: 20040701

REACTIONS (3)
  - FALL [None]
  - HYPOTENSION [None]
  - LOSS OF CONSCIOUSNESS [None]
